FAERS Safety Report 7059778-3 (Version None)
Quarter: 2010Q4

REPORT INFORMATION
  Report Type: 
  Country: None (occurrence: None)
  Receive Date: 20101025
  Receipt Date: 20101018
  Transmission Date: 20110411
  Serious: Yes (Other)
  Sender: FDA-Public Use
  Company Number: US-PFIZER INC-2010120236

PATIENT
  Sex: Male
  Weight: 163.27 kg

DRUGS (2)
  1. DEPO-TESTOSTERONE [Suspect]
     Dosage: 50 MG, 1X/DAY
     Dates: start: 20100317, end: 20100320
  2. DEPO-TESTOSTERONE [Suspect]
     Dosage: UNK
     Dates: start: 20100413

REACTIONS (9)
  - CHEST PAIN [None]
  - DIZZINESS [None]
  - FATIGUE [None]
  - HEADACHE [None]
  - MUSCULAR WEAKNESS [None]
  - PAINFUL RESPIRATION [None]
  - PSYCHOSOMATIC DISEASE [None]
  - PYREXIA [None]
  - TREMOR [None]
